FAERS Safety Report 17149011 (Version 3)
Quarter: 2019Q4

REPORT INFORMATION
  Report Type: Spontaneous
  Country: US (occurrence: US)
  Receive Date: 20191213
  Receipt Date: 20191223
  Transmission Date: 20200122
  Serious: Yes (Other)
  Sender: FDA-Public Use
  Company Number: US-009507513-1912USA005468

PATIENT
  Age: 16 Year
  Sex: Female
  Weight: 50.79 kg

DRUGS (3)
  1. NEXPLANON [Suspect]
     Active Substance: ETONOGESTREL
     Indication: CONTRACEPTION
     Dosage: 1 ROD, UNK
     Route: 023
     Dates: start: 20161117
  2. NEXPLANON [Suspect]
     Active Substance: ETONOGESTREL
     Dosage: 1 ROD, UNK
     Dates: start: 20191126
  3. NEXPLANON [Suspect]
     Active Substance: ETONOGESTREL
     Dosage: 1 ROD, EVERY THREE YEARS
     Route: 023
     Dates: start: 20191121, end: 20191126

REACTIONS (8)
  - Cholecystectomy [Unknown]
  - Device deployment issue [Recovered/Resolved]
  - Implant site pain [Recovered/Resolved]
  - Implant site irritation [Recovered/Resolved]
  - Implant site hypersensitivity [Recovered/Resolved]
  - Incorrect route of product administration [Unknown]
  - Discomfort [Recovered/Resolved]
  - Appendicectomy [Unknown]

NARRATIVE: CASE EVENT DATE: 20161117
